FAERS Safety Report 6328243-0 (Version None)
Quarter: 2009Q3

REPORT INFORMATION
  Report Type: 
  Country: None (occurrence: None)
  Receive Date: 20090825
  Receipt Date: 20090129
  Transmission Date: 20100115
  Serious: No
  Sender: FDA-Public Use
  Company Number: US-ABBOTT-09P-163-0501081-00

PATIENT
  Sex: Female
  Weight: 70.37 kg

DRUGS (6)
  1. SYNTHROID [Suspect]
     Indication: HYPOTHYROIDISM
     Route: 048
     Dates: start: 19650101, end: 20080701
  2. SYNTHROID [Suspect]
     Route: 048
     Dates: start: 20080701, end: 20080901
  3. SYNTHROID [Suspect]
     Dosage: HALF OF 125MCG TAB DAILY=62.5MCG DAILY
     Route: 048
     Dates: start: 20080901
  4. PREVACID [Concomitant]
     Indication: DRUG USE FOR UNKNOWN INDICATION
  5. ALLEGRA [Concomitant]
     Indication: DRUG USE FOR UNKNOWN INDICATION
  6. ARECIA [Concomitant]
     Indication: DRUG USE FOR UNKNOWN INDICATION

REACTIONS (4)
  - ASTHENIA [None]
  - FATIGUE [None]
  - HYPERSOMNIA [None]
  - MALAISE [None]
